FAERS Safety Report 5590364-8 (Version None)
Quarter: 2008Q1

REPORT INFORMATION
  Report Type: 
  Country: None (occurrence: None)
  Receive Date: 20080114
  Receipt Date: 20080108
  Transmission Date: 20080703
  Serious: Yes (Death)
  Sender: FDA-Public Use
  Company Number: JP-ROXANE LABORATORIES, INC-2008-BP-00384RO

PATIENT
  Age: 23 Year
  Sex: Female

DRUGS (3)
  1. CYCLOPHOSPHAMIDE [Suspect]
     Indication: IMMUNOSUPPRESSION
  2. TACROLIMUS [Suspect]
     Indication: IMMUNOSUPPRESSION
  3. PROSTACYCLIN ANALOG INFUSION [Concomitant]
     Route: 042

REACTIONS (3)
  - MULTI-ORGAN FAILURE [None]
  - PYREXIA [None]
  - THROMBOTIC MICROANGIOPATHY [None]
